FAERS Safety Report 7326700-1 (Version None)
Quarter: 2011Q1

REPORT INFORMATION
  Report Type: 
  Country: None (occurrence: None)
  Receive Date: 20110216
  Receipt Date: 20110203
  Transmission Date: 20110831
  Serious: Yes (Hospitalization)
  Sender: FDA-Public Use
  Company Number: 2011SP000161

PATIENT
  Sex: Female

DRUGS (2)
  1. ASMANEX TWISTHALER [Suspect]
     Indication: PRODUCT USED FOR UNKNOWN INDICATION
     Dosage: 220 MCG, QD
     Dates: start: 20101220
  2. MAXAIR [Concomitant]

REACTIONS (1)
  - ASTHMA [None]
